FAERS Safety Report 9433317 (Version 1)
Quarter: 2013Q3

REPORT INFORMATION
  Report Type: Spontaneous
  Country: IT (occurrence: IT)
  Receive Date: 20130731
  Receipt Date: 20130731
  Transmission Date: 20140515
  Serious: Yes (Hospitalization, Other)
  Sender: FDA-Public Use
  Company Number: IT-BRISTOL-MYERS SQUIBB COMPANY-18958371

PATIENT
  Age: 81 Year
  Sex: Male

DRUGS (4)
  1. COUMADIN TABS 5 MG [Suspect]
     Indication: PROPHYLAXIS
     Dosage: 1DF=1 DOSAGE UNIT
     Route: 048
     Dates: start: 20100101, end: 20130504
  2. ARCOXIA [Interacting]
     Indication: ARTHRALGIA
     Route: 048
     Dates: start: 20130501, end: 20130504
  3. ATENOLOL [Concomitant]
     Route: 048
  4. HIZAAR [Concomitant]
     Dosage: 50+12.5 MG TAB. 1 DF=1UNIT
     Route: 048

REACTIONS (3)
  - Subcutaneous haematoma [Recovering/Resolving]
  - International normalised ratio increased [Recovering/Resolving]
  - Drug interaction [Unknown]
